FAERS Safety Report 6966053-1 (Version None)
Quarter: 2010Q3

REPORT INFORMATION
  Report Type: 
  Country: None (occurrence: None)
  Receive Date: 20100903
  Receipt Date: 20100818
  Transmission Date: 20110219
  Serious: No
  Sender: FDA-Public Use
  Company Number: A0864304A

PATIENT
  Sex: Female

DRUGS (2)
  1. LAMICTAL [Suspect]
     Route: 065
  2. UNKNOWN [Concomitant]

REACTIONS (2)
  - BRUXISM [None]
  - MUSCLE TIGHTNESS [None]
